FAERS Safety Report 19230164 (Version 1)
Quarter: 2021Q2

REPORT INFORMATION
  Report Type: Spontaneous
  Country: GB (occurrence: GB)
  Receive Date: 20210507
  Receipt Date: 20210507
  Transmission Date: 20210717
  Serious: Yes (Hospitalization, Other)
  Sender: FDA-Public Use
  Company Number: GB-TEVA-2021-GB-1895951

PATIENT
  Age: 48 Year
  Sex: Female
  Weight: 51.4 kg

DRUGS (20)
  1. DEXAMETHASONE. [Suspect]
     Active Substance: DEXAMETHASONE
     Indication: NAUSEA
     Dosage: 8 MILLIGRAM DAILY;
     Route: 048
     Dates: start: 20210220, end: 20210221
  2. METOCLOPRAMIDE. [Suspect]
     Active Substance: METOCLOPRAMIDE
     Indication: VOMITING
     Route: 065
  3. CAELYX [Suspect]
     Active Substance: DOXORUBICIN HYDROCHLORIDE
     Indication: OVARIAN CANCER
     Dosage: 4TH CYCLE
     Route: 065
     Dates: start: 20210219
  4. CAELYX [Suspect]
     Active Substance: DOXORUBICIN HYDROCHLORIDE
     Dosage: 4TH CYCLE; ; DOSAGE STRENGTH 50 MG/25 ML
     Route: 065
     Dates: start: 20210215
  5. GLUCOSE MONOHYDRATE [Suspect]
     Active Substance: DEXTROSE MONOHYDRATE
     Dosage: 4TH CYCLE; CAELYX 50MG + 5%GLUCOSE 250 ML OVER 1 HOUR(250ML)
     Route: 065
     Dates: start: 20210219
  6. CAELYX [Suspect]
     Active Substance: DOXORUBICIN HYDROCHLORIDE
     Dosage: FIRST 3 CYCLES; CAELYX+5%GLUCOSE; DOSAGE STRENGTH 50 MG/25 ML
     Route: 065
  7. GLUCOSE MONOHYDRATE [Suspect]
     Active Substance: DEXTROSE MONOHYDRATE
     Dosage: 4TH CYCLE; CARBOPLATIN 450 MG + 5% GLUCOSE 545 ML OVER 1 HOUR (500 ML)
     Route: 065
     Dates: start: 20210219
  8. CARBOPLATIN. [Suspect]
     Active Substance: CARBOPLATIN
     Dosage: 4TH CYCLE
     Route: 065
     Dates: start: 20210215
  9. CAELYX [Suspect]
     Active Substance: DOXORUBICIN HYDROCHLORIDE
     Dosage: 4TH CYCLE, CAELYX 50MG+5% GLUCOSE 250 ML OVER1 HOUR(50MG); DOSAGE STRENGTH 50 MG/25 ML
     Route: 065
     Dates: start: 20210219
  10. PARACETAMOL [Concomitant]
     Active Substance: ACETAMINOPHEN
     Indication: PAIN
     Dosage: 500 MG?1 G UPTO FOUR TIMES A DAY, AS REQUIRED; NOT KNOWN?LONG TERM (4 IN 1 D)
     Route: 048
  11. SARS?COV?2 VIRUS [Concomitant]
     Active Substance: SARS-COV-2
     Indication: COVID-19 PROPHYLAXIS
     Dosage: 1 DOSE, STAT
     Route: 030
     Dates: start: 20210221
  12. CARBOPLATIN. [Suspect]
     Active Substance: CARBOPLATIN
     Dosage: FIRST 3 CYCLES;CARBOPLATIN+5%GLUCOSE
     Route: 065
  13. DEXAMETHASONE. [Suspect]
     Active Substance: DEXAMETHASONE
     Indication: VOMITING
     Route: 065
  14. CARBOPLATIN. [Suspect]
     Active Substance: CARBOPLATIN
     Dosage: 4TH CYCLE, CARBOPLATIN 450 MG + 5% GLUCOSE 545 ML GIVEN OVER 1 HOUR (450 MG)
     Route: 065
     Dates: start: 20210219
  15. ONDANSETRON [Suspect]
     Active Substance: ONDANSETRON
     Indication: VOMITING
     Route: 065
  16. CARBOPLATIN. [Suspect]
     Active Substance: CARBOPLATIN
     Indication: OVARIAN CANCER
     Dosage: 4TH CYCLE
     Route: 065
     Dates: start: 20210219
  17. METOCLOPRAMIDE. [Suspect]
     Active Substance: METOCLOPRAMIDE
     Indication: NAUSEA
     Dosage: 30 MILLIGRAM DAILY; UP TO 3 TIMES A DAY, AS REQUIRED
     Route: 048
     Dates: start: 20201113
  18. ONDANSETRON [Suspect]
     Active Substance: ONDANSETRON
     Indication: NAUSEA
     Dosage: 16 MILLIGRAM DAILY;
     Route: 048
     Dates: start: 20210220, end: 20210221
  19. GLUCOSE MONOHYDRATE [Suspect]
     Active Substance: DEXTROSE MONOHYDRATE
     Indication: MEDICATION DILUTION
     Dosage: FIRST 3 CYCLES; CARBOPLATIN + 5% GLUCOSE
     Route: 065
  20. GLUCOSE MONOHYDRATE [Suspect]
     Active Substance: DEXTROSE MONOHYDRATE
     Dosage: FIRST 3 CYCLES;CAELYX+5%GLUCOSE
     Route: 065

REACTIONS (4)
  - Myelosuppression [Unknown]
  - Pancytopenia [Recovering/Resolving]
  - Mouth ulceration [Unknown]
  - Neutropenic sepsis [Recovering/Resolving]

NARRATIVE: CASE EVENT DATE: 20210308
